FAERS Safety Report 24168597 (Version 4)
Quarter: 2024Q3

REPORT INFORMATION
  Report Type: Spontaneous
  Country: US (occurrence: None)
  Receive Date: 20240802
  Receipt Date: 20240906
  Transmission Date: 20241016
  Serious: No
  Sender: ASTRAZENECA
  Company Number: 2024A169336

PATIENT
  Age: 21344 Day
  Sex: Female

DRUGS (1)
  1. TEZSPIRE [Suspect]
     Active Substance: TEZEPELUMAB-EKKO
     Dosage: 210.0MG UNKNOWN
     Route: 058

REACTIONS (11)
  - Injection site haemorrhage [Unknown]
  - Injection site bruising [Unknown]
  - Injection site injury [Unknown]
  - Incorrect dose administered by device [Unknown]
  - Device use issue [Unknown]
  - Device leakage [Unknown]
  - Wrong technique in device usage process [Unknown]
  - Device defective [Unknown]
  - Injury associated with device [Unknown]
  - Contusion [Unknown]
  - Product administered at inappropriate site [Unknown]

NARRATIVE: CASE EVENT DATE: 20240724
